FAERS Safety Report 11419562 (Version 1)
Quarter: 2015Q3

REPORT INFORMATION
  Report Type: Spontaneous
  Country: US (occurrence: None)
  Receive Date: 20150825
  Receipt Date: 20150825
  Transmission Date: 20151125
  Serious: Yes (Other)
  Sender: FDA-Public Use
  Company Number: None

PATIENT
  Age: 63 Year
  Sex: Female
  Weight: 63.96 kg

DRUGS (1)
  1. ZOCOR [Suspect]
     Active Substance: SIMVASTATIN
     Indication: HYPERLIPIDAEMIA
     Dosage: 1 PILL
     Route: 048
     Dates: start: 20150508, end: 20150808

REACTIONS (2)
  - Chest pain [None]
  - Abnormal dreams [None]

NARRATIVE: CASE EVENT DATE: 20150808
